FAERS Safety Report 9685574 (Version 2)
Quarter: 2013Q4

REPORT INFORMATION
  Report Type: Spontaneous
  Country: US (occurrence: US)
  Receive Date: 20131113
  Receipt Date: 20131113
  Transmission Date: 20140711
  Serious: No
  Sender: FDA-Public Use
  Company Number: US-ENDO PHARMACEUTICALS INC.-HYDX20130001

PATIENT
  Sex: Female
  Weight: 54.48 kg

DRUGS (2)
  1. HYDROXYZINE HYDROCHLORIDE TABLETS 25MG [Suspect]
     Indication: DERMATITIS CONTACT
     Route: 048
     Dates: start: 2013, end: 2013
  2. SYNTHROID [Concomitant]
     Indication: THYROID DISORDER
     Dosage: UNKNOWN
     Route: 065

REACTIONS (3)
  - Vertigo [Recovering/Resolving]
  - Foreign body [Recovered/Resolved]
  - Somnolence [Recovered/Resolved]
